FAERS Safety Report 18020423 (Version 1)
Quarter: 2020Q3

REPORT INFORMATION
  Report Type: Spontaneous
  Country: CN (occurrence: CN)
  Receive Date: 20200714
  Receipt Date: 20200714
  Transmission Date: 20201103
  Serious: Yes (Other)
  Sender: FDA-Public Use
  Company Number: CN-009507513-2007CHN002275

PATIENT
  Age: 78 Year
  Sex: Female

DRUGS (1)
  1. DIPROSPAN [Suspect]
     Active Substance: BETAMETHASONE DIPROPIONATE\BETAMETHASONE SODIUM PHOSPHATE
     Indication: POST HERPETIC NEURALGIA
     Dosage: 7 MILLIGRAM, QD
     Route: 041
     Dates: start: 20200605, end: 20200610

REACTIONS (5)
  - Dysarthria [Recovering/Resolving]
  - Chills [Recovering/Resolving]
  - Atrial fibrillation [Recovering/Resolving]
  - Pyrexia [Recovering/Resolving]
  - Pain in extremity [Recovering/Resolving]

NARRATIVE: CASE EVENT DATE: 20200610
